FAERS Safety Report 9280467 (Version 2)
Quarter: 2013Q1

REPORT INFORMATION
  Report Type: Spontaneous
  Country: DE (occurrence: None)
  Receive Date: 20130213
  Receipt Date: 20130315
  Transmission Date: 20140127
  Serious: Yes (Other)
  Sender: FDA-Public Use
  Company Number: 220361

PATIENT
  Sex: Male

DRUGS (4)
  1. PICATO [Suspect]
     Indication: ACTINIC KERATOSIS
     Dosage: ABOUT 6 WEEKS AFTER CRYOTHERAPY
     Route: 061
  2. SOLARAZE (DICLOFENAC) [Concomitant]
  3. ACTIKERALL (FLUOROURACIL) [Concomitant]
  4. ACTIKERALL (SALICYLIC ACID) [Concomitant]

REACTIONS (3)
  - Application site scar [None]
  - Application site pain [None]
  - Local swelling [None]
